FAERS Safety Report 7719661-4 (Version None)
Quarter: 2011Q3

REPORT INFORMATION
  Report Type: 
  Country: None (occurrence: None)
  Receive Date: 20110830
  Receipt Date: 20110824
  Transmission Date: 20111222
  Serious: Yes (Hospitalization)
  Sender: FDA-Public Use
  Company Number: FR-MERCK-1108FRA00098

PATIENT
  Age: 68 Year
  Sex: Female

DRUGS (1)
  1. INVANZ [Suspect]
     Indication: LUNG INFECTION
     Route: 042
     Dates: start: 20110518, end: 20110519

REACTIONS (3)
  - OVERDOSE [None]
  - NO ADVERSE EVENT [None]
  - DRUG ADMINISTRATION ERROR [None]
